FAERS Safety Report 22204399 (Version 1)
Quarter: 2023Q2

REPORT INFORMATION
  Report Type: Report from Study
  Country: CO (occurrence: CO)
  Receive Date: 20230413
  Receipt Date: 20230413
  Transmission Date: 20230721
  Serious: Yes (Death, Life-Threatening, Hospitalization, Other)
  Sender: FDA-Public Use
  Company Number: CO-ABBVIE-4725304

PATIENT
  Sex: Male

DRUGS (1)
  1. ZEMPLAR [Suspect]
     Active Substance: PARICALCITOL
     Indication: Hyperparathyroidism secondary
     Dosage: STRENGTH: 5 MICROGRAM   POSTDIALYSIS
     Route: 042
     Dates: start: 20220427, end: 20230324

REACTIONS (4)
  - General physical health deterioration [Fatal]
  - Choking [Not Recovered/Not Resolved]
  - Swelling [Not Recovered/Not Resolved]
  - Localised oedema [Not Recovered/Not Resolved]
